FAERS Safety Report 7363690-X (Version None)
Quarter: 2011Q1

REPORT INFORMATION
  Report Type: 
  Country: None (occurrence: None)
  Receive Date: 20110321
  Receipt Date: 20101203
  Transmission Date: 20110831
  Serious: No
  Sender: FDA-Public Use
  Company Number: A0897657A

PATIENT
  Age: 81 Year
  Sex: Male

DRUGS (1)
  1. PROMACTA [Suspect]
     Dosage: 75MG PER DAY
     Route: 048
     Dates: start: 20100921

REACTIONS (1)
  - OEDEMA PERIPHERAL [None]
